FAERS Safety Report 15222173 (Version 1)
Quarter: 2018Q3

REPORT INFORMATION
  Report Type: Spontaneous
  Country: US (occurrence: US)
  Receive Date: 20180731
  Receipt Date: 20180731
  Transmission Date: 20181010
  Serious: Yes (Other)
  Sender: FDA-Public Use
  Company Number: PHEH2018US030740

PATIENT
  Sex: Male

DRUGS (1)
  1. RECLAST [Suspect]
     Active Substance: ZOLEDRONIC ACID
     Indication: OSTEOPOROSIS
     Route: 065

REACTIONS (7)
  - Bone pain [Unknown]
  - Myalgia [Unknown]
  - Atrial fibrillation [Unknown]
  - Headache [Unknown]
  - Atrial flutter [Unknown]
  - Insomnia [Unknown]
  - Neck pain [Unknown]
